FAERS Safety Report 22263902 (Version 1)
Quarter: 2023Q2

REPORT INFORMATION
  Report Type: Spontaneous
  Country: AR (occurrence: AR)
  Receive Date: 20230428
  Receipt Date: 20230428
  Transmission Date: 20230722
  Serious: No
  Sender: FDA-Public Use
  Company Number: AR-PFIZER INC-PV202300072562

PATIENT
  Age: 4 Year
  Sex: Male

DRUGS (1)
  1. GENOTROPIN [Suspect]
     Active Substance: SOMATROPIN
     Indication: Foetal growth restriction
     Dosage: 1 TO 1.4MG 6 TIMES PER WEEK
     Dates: start: 20180316

REACTIONS (3)
  - Device mechanical issue [Unknown]
  - Poor quality device used [Unknown]
  - Off label use [Unknown]

NARRATIVE: CASE EVENT DATE: 20180316
